FAERS Safety Report 4395745-6 (Version None)
Quarter: 2004Q3

REPORT INFORMATION
  Report Type: 
  Country: None (occurrence: None)
  Receive Date: 20040707
  Receipt Date: 20040622
  Transmission Date: 20050211
  Serious: Yes (Death, Hospitalization)
  Sender: FDA-Public Use
  Company Number: JP-JNJFOC-20040506501

PATIENT
  Age: 34 Year
  Sex: Female
  Weight: 41 kg

DRUGS (9)
  1. REMICADE [Suspect]
     Indication: CROHN'S DISEASE
     Dosage: 5 MG/KG, 1 IN 1 AS NECESSARY; INTRAVENOUS DRIP (SEE IMAGE)
     Route: 041
     Dates: start: 20030529, end: 20030529
  2. REMICADE [Suspect]
     Indication: CROHN'S DISEASE
     Dosage: 5 MG/KG, 1 IN 1 AS NECESSARY; INTRAVENOUS DRIP (SEE IMAGE)
     Route: 041
     Dates: start: 20030619, end: 20030619
  3. REMICADE [Suspect]
     Indication: CROHN'S DISEASE
     Dosage: 5 MG/KG, 1 IN 1 AS NECESSARY; INTRAVENOUS DRIP (SEE IMAGE)
     Route: 041
     Dates: start: 20030729, end: 20030729
  4. PREDNISOLONE [Suspect]
     Indication: CROHN'S DISEASE
     Dosage: 20 MG; INTRAVENOUS
     Route: 042
     Dates: start: 20030507
  5. MEROPEN (MEROPENEM) UNKNOWN [Suspect]
     Indication: DRUG USE FOR UNKNOWN INDICATION
     Dosage: 0.5 G, IN 1 DAY; INTRAVENOUS
     Route: 042
     Dates: start: 20030601, end: 20030607
  6. PENTASA [Concomitant]
  7. VENOLIN GAMMA GLOBULIN (ALL OTHER THERAPEUTIC PRODUCTS) [Concomitant]
  8. TOTAL PARENTERAL NUTRITION (POLYVINYL ALCOHOL) [Concomitant]
  9. DENOSINE (GANCICLOVIR SODIUM) [Concomitant]

REACTIONS (13)
  - BILE DUCT STONE [None]
  - BLOOD PRESSURE DECREASED [None]
  - CHOLANGITIS [None]
  - CYTOMEGALOVIRUS INFECTION [None]
  - DIALYSIS [None]
  - DRUG EFFECT DECREASED [None]
  - DRUG INTERACTION [None]
  - HERPES ZOSTER [None]
  - INTERSTITIAL LUNG DISEASE [None]
  - JAUNDICE CHOLESTATIC [None]
  - MELAENA [None]
  - NEPHRITIS INTERSTITIAL [None]
  - SEPSIS [None]
